FAERS Safety Report 4996029-5 (Version None)
Quarter: 2006Q2

REPORT INFORMATION
  Report Type: 
  Country: None (occurrence: None)
  Receive Date: 20060508
  Receipt Date: 20060126
  Transmission Date: 20061013
  Serious: Yes (Hospitalization)
  Sender: FDA-Public Use
  Company Number: US-MERCK-0601USA03607

PATIENT
  Age: 61 Year
  Sex: Female
  Weight: 82 kg

DRUGS (24)
  1. OCUFLOX [Concomitant]
     Route: 065
  2. PATANOL [Concomitant]
     Route: 065
  3. PLAVIX [Concomitant]
     Route: 065
     Dates: start: 20031120, end: 20051213
  4. TOPROL-XL [Concomitant]
     Route: 065
     Dates: start: 20040811, end: 20050401
  5. ZITHROMAX [Concomitant]
     Route: 065
  6. PREMPRO [Concomitant]
     Route: 065
  7. NIASPAN [Concomitant]
     Route: 065
  8. VIOXX [Suspect]
     Indication: RHEUMATOID ARTHRITIS
     Route: 048
     Dates: start: 20000518, end: 20010201
  9. VIOXX [Suspect]
     Route: 048
     Dates: start: 20010201, end: 20031117
  10. VIOXX [Suspect]
     Route: 048
     Dates: start: 20031117, end: 20040906
  11. NORTRIPTYLINE HYDROCHLORIDE [Concomitant]
     Route: 065
     Dates: start: 20020626, end: 20021017
  12. PROPOXYPHENE HYDROCHLORIDE [Concomitant]
     Route: 065
  13. ADVAIR DISKUS 100/50 [Concomitant]
     Route: 065
  14. ALTACE [Concomitant]
     Route: 065
     Dates: start: 20010917, end: 20040626
  15. ARAVA [Concomitant]
     Route: 065
  16. BENICAR HCT [Concomitant]
     Route: 065
  17. ACETAMINOPHEN AND BUTALBITAL [Concomitant]
     Route: 065
  18. CLOTRIMAZOLE [Concomitant]
     Route: 065
  19. COZAAR [Concomitant]
     Route: 065
     Dates: start: 20040626, end: 20050601
  20. HYDROCHLOROTHIAZIDE [Concomitant]
     Route: 065
  21. METHYLPREDNISOLONE [Concomitant]
     Route: 065
  22. NADOLOL [Concomitant]
     Route: 065
     Dates: start: 20031121, end: 20040323
  23. PREMARIN [Concomitant]
     Route: 065
     Dates: start: 20010305, end: 20010405
  24. PLAVIX [Concomitant]
     Route: 065
     Dates: start: 20031120, end: 20040323

REACTIONS (7)
  - ABDOMINAL PAIN UPPER [None]
  - CORONARY ARTERY DISEASE [None]
  - ESSENTIAL HYPERTENSION [None]
  - GLAUCOMA [None]
  - MYOCARDIAL INFARCTION [None]
  - OVERDOSE [None]
  - RENAL FAILURE [None]
